FAERS Safety Report 7296576-X (Version None)
Quarter: 2011Q1

REPORT INFORMATION
  Report Type: 
  Country: None (occurrence: None)
  Receive Date: 20110216
  Receipt Date: 20110207
  Transmission Date: 20110831
  Serious: Yes (Life-Threatening, Hospitalization)
  Sender: FDA-Public Use
  Company Number: PHHY2009DE42673

PATIENT
  Sex: Female
  Weight: 93 kg

DRUGS (1)
  1. CGS 20267 [Suspect]
     Indication: BREAST CANCER
     Dosage: 2.5 MG, QD
     Route: 048
     Dates: start: 20081126

REACTIONS (3)
  - COLON CANCER [None]
  - PAIN IN EXTREMITY [None]
  - GASTROINTESTINAL CARCINOMA [None]
